FAERS Safety Report 6284917-1 (Version None)
Quarter: 2009Q3

REPORT INFORMATION
  Report Type: 
  Country: None (occurrence: None)
  Receive Date: 20090727
  Receipt Date: 20090723
  Transmission Date: 20100115
  Serious: Yes (Hospitalization, Other)
  Sender: FDA-Public Use
  Company Number: JP-ABBOTT-09P-087-0574832-00

PATIENT
  Sex: Female
  Weight: 34 kg

DRUGS (4)
  1. KLARICID [Suspect]
     Indication: PRODUCTIVE COUGH
     Route: 048
     Dates: start: 20070601, end: 20071001
  2. ITRACONAZOLE [Interacting]
     Indication: BRONCHIAL SECRETION RETENTION
     Dates: start: 20070601, end: 20070601
  3. ITRACONAZOLE [Interacting]
     Route: 048
     Dates: start: 20070601, end: 20071001
  4. ITRACONAZOLE [Interacting]
     Dosage: NOT REPORTED

REACTIONS (2)
  - CARDIAC FAILURE [None]
  - DRUG INTERACTION [None]
